FAERS Safety Report 26024174 (Version 1)
Quarter: 2025Q4

REPORT INFORMATION
  Report Type: Spontaneous
  Country: US (occurrence: US)
  Receive Date: 20251111
  Receipt Date: 20251111
  Transmission Date: 20260117
  Serious: Yes (Hospitalization)
  Sender: CHEPLAPHARM
  Company Number: US-CHEPLA-2025007895

PATIENT
  Age: 61 Year
  Sex: Male
  Weight: 67.169 kg

DRUGS (19)
  1. OLANZAPINE PAMOATE [Suspect]
     Active Substance: OLANZAPINE PAMOATE
     Dates: start: 20250922
  2. VALIUM [Concomitant]
     Active Substance: DIAZEPAM
     Dosage: Q 4 HOURS?DAILY DOSE: 30 MILLIGRAM
     Route: 042
  3. BENADRYL [Concomitant]
     Active Substance: DIPHENHYDRAMINE HYDROCHLORIDE
     Dosage: IV X 2?DAILY DOSE: 50 MILLIGRAM
     Route: 042
  4. COGENTIN [Concomitant]
     Active Substance: BENZTROPINE MESYLATE
  5. SODIUM CHLORIDE [Concomitant]
     Active Substance: SODIUM CHLORIDE
     Dosage: 1 L
  6. THIAMINE [Concomitant]
     Active Substance: THIAMINE
     Dosage: IV Q 8 HOURS X 6 DOSES?DAILY DOSE: 1500 MILLIGRAM
     Route: 042
  7. PRECEDEX [Concomitant]
     Active Substance: DEXMEDETOMIDINE HYDROCHLORIDE
     Dosage: NO DOSE OR FREQUENCY NOTED
  8. LORAZEPAM [Concomitant]
     Active Substance: LORAZEPAM
     Dosage: 1MG Q 4 HOURS?DAILY DOSE: 6 MILLIGRAM
  9. FOLIC ACID [Concomitant]
     Active Substance: FOLIC ACID
     Dosage: 1MG?(ORAL OR IV) DAILY WITH BREAKFAST
  10. VITAMINS [Concomitant]
     Active Substance: VITAMINS
     Dosage: 1 TAB PO DAILY WITH BREAKFAST?DAILY DOSE: 1 DOSAGE FORM
     Route: 048
  11. ARIPIPRAZOLE [Concomitant]
     Active Substance: ARIPIPRAZOLE
     Dosage: 10MG PO Q BID?DAILY DOSE: 20 MILLIGRAM
     Route: 048
  12. ASPIRIN [Concomitant]
     Active Substance: ASPIRIN
     Dosage: EC PO Q DAY?DAILY DOSE: 81 MILLIGRAM
     Route: 048
  13. CertaVite Senior [Concomitant]
     Dosage: DAILY DOSE: 1 DOSAGE FORM
     Route: 048
  14. HYDROXYZINE [Concomitant]
     Active Substance: HYDROXYZINE HYDROCHLORIDE
     Indication: Pruritus
     Dosage: 1 TAB PO Q 6H PRN??DAILY DOSE: 4 DOSAGE FORM
     Route: 048
  15. IBUPROFEN [Concomitant]
     Active Substance: IBUPROFEN
     Dosage: 1 TAB PO Q 6H PRN?DAILY DOSE: 4 DOSAGE FORM
     Route: 048
  16. LORAZEPAM [Concomitant]
     Active Substance: LORAZEPAM
     Dosage: 0.5MG (1MG) PO BID?DAILY DOSE: 2 MILLIGRAM
     Route: 048
  17. MELATONIN [Concomitant]
     Active Substance: MELATONIN
     Dosage: 10MG PO Q HS?DAILY DOSE: 10 MILLIGRAM
     Route: 048
  18. NICOTINE [Concomitant]
     Active Substance: NICOTINE
     Dosage: PATCH APPLY 1 PATCH ON SKIN DAILY
     Route: 061
  19. OXCARBAZEPINE [Concomitant]
     Active Substance: OXCARBAZEPINE
     Dosage: 1 TAB PO BID?DAILY DOSE: 1200 MILLIGRAM
     Route: 048

REACTIONS (4)
  - Post-injection delirium sedation syndrome [Recovered/Resolved]
  - Sinus tachycardia [Unknown]
  - Dysphagia [Unknown]
  - Vitamin B12 abnormal [Unknown]

NARRATIVE: CASE EVENT DATE: 20250922
